FAERS Safety Report 6225399-5 (Version None)
Quarter: 2009Q2

REPORT INFORMATION
  Report Type: 
  Country: None (occurrence: None)
  Receive Date: 20090612
  Receipt Date: 20090416
  Transmission Date: 20091009
  Serious: No
  Sender: FDA-Public Use
  Company Number: US-ABBOTT-09P-163-0568871-00

PATIENT
  Sex: Female
  Weight: 79.904 kg

DRUGS (6)
  1. HUMIRA [Suspect]
     Indication: RHEUMATOID ARTHRITIS
     Route: 058
     Dates: start: 20090212
  2. VERAPAMIL [Concomitant]
     Indication: DRUG USE FOR UNKNOWN INDICATION
  3. LISINOPRIL [Concomitant]
     Indication: DRUG USE FOR UNKNOWN INDICATION
  4. ESTRADIOL [Concomitant]
     Indication: DRUG USE FOR UNKNOWN INDICATION
  5. CYCLOBENZAPRINE [Concomitant]
     Indication: DRUG USE FOR UNKNOWN INDICATION
  6. MOBIC [Concomitant]
     Indication: DRUG USE FOR UNKNOWN INDICATION

REACTIONS (5)
  - DRY SKIN [None]
  - ERYTHEMA [None]
  - PRURITUS [None]
  - RASH [None]
  - SKIN EXFOLIATION [None]
